FAERS Safety Report 9513435 (Version 1)
Quarter: 2013Q3

REPORT INFORMATION
  Report Type: Spontaneous
  Country: US (occurrence: US)
  Receive Date: 20130910
  Receipt Date: 20130910
  Transmission Date: 20140515
  Serious: Yes (Other)
  Sender: FDA-Public Use
  Company Number: US-TARO-2012P1062862

PATIENT
  Age: 34 Year
  Sex: Male

DRUGS (19)
  1. WARFARIN SODIUM TABLETS USP 5MG [Suspect]
     Indication: PULMONARY EMBOLISM
     Route: 048
     Dates: start: 20120801, end: 201208
  2. WARFARIN SODIUM TABLETS USP 5MG [Suspect]
     Indication: PULMONARY EMBOLISM
     Route: 048
     Dates: start: 20120801, end: 201208
  3. WARFARIN SODIUM TABLETS USP 5MG [Suspect]
     Indication: PULMONARY EMBOLISM
  4. WARFARIN SODIUM TABLETS USP 5MG [Suspect]
     Indication: PULMONARY EMBOLISM
  5. WARFARIN SODIUM TABLETS USP 5MG [Suspect]
     Indication: PULMONARY EMBOLISM
     Route: 048
     Dates: end: 20121025
  6. WARFARIN SODIUM TABLETS USP 5MG [Suspect]
     Indication: PULMONARY EMBOLISM
     Route: 048
     Dates: end: 20121025
  7. WARFARIN SODIUM TABLETS USP 10MG [Suspect]
     Indication: PULMONARY EMBOLISM
     Route: 048
     Dates: start: 20121025, end: 20121029
  8. CYANOCOBALAMIN [Concomitant]
  9. FERROUS SULFATE [Concomitant]
  10. FUROSEMIDE [Concomitant]
  11. LAMOTRIGINE [Concomitant]
  12. LORAZEPAM [Concomitant]
  13. ONDANSETRON [Concomitant]
  14. OXYCODONE [Concomitant]
  15. PANTOPRAZOLE [Concomitant]
  16. RISPERIDONE [Concomitant]
  17. CITRULLINE [Concomitant]
  18. TRAMADOL [Concomitant]
  19. ZOLPIDEM [Concomitant]

REACTIONS (4)
  - International normalised ratio decreased [Unknown]
  - Headache [Recovered/Resolved]
  - Chest pain [Recovering/Resolving]
  - International normalised ratio increased [Unknown]
